FAERS Safety Report 4608791-1 (Version None)
Quarter: 2005Q1

REPORT INFORMATION
  Report Type: 
  Country: None (occurrence: None)
  Receive Date: 20050315
  Receipt Date: 20030326
  Transmission Date: 20050727
  Serious: Yes (Life-Threatening, Hospitalization, Other)
  Sender: FDA-Public Use
  Company Number: US-GLAXOSMITHKLINE-A0402333B

PATIENT
  Age: 47 Year
  Sex: Female

DRUGS (6)
  1. B.C. HEADACHE POWDER [Suspect]
     Route: 048
     Dates: start: 19940516
  2. ROBITUSSIN [Suspect]
     Route: 048
  3. DIMETAPP [Suspect]
     Route: 048
  4. PREMARIN [Concomitant]
     Route: 048
     Dates: start: 19850101
  5. BC SINUS COLD (UNSPEC.)-PHENYLPROPANOLAMINE [Concomitant]
     Route: 048
     Dates: start: 19940516
  6. VITAMINS [Concomitant]

REACTIONS (28)
  - AMNESIA [None]
  - ASTHENIA [None]
  - ATELECTASIS [None]
  - BODY TEMPERATURE INCREASED [None]
  - BRAIN OEDEMA [None]
  - CEREBRAL HAEMORRHAGE [None]
  - CEREBROVASCULAR SPASM [None]
  - CONFUSIONAL STATE [None]
  - DIZZINESS [None]
  - DRY MOUTH [None]
  - DYSPHAGIA [None]
  - GRAND MAL CONVULSION [None]
  - HEADACHE [None]
  - HEMIPARESIS [None]
  - HYPERTENSION [None]
  - INTRACRANIAL ANEURYSM [None]
  - INTRACRANIAL PRESSURE INCREASED [None]
  - INTRAVENTRICULAR HAEMORRHAGE [None]
  - LETHARGY [None]
  - NAUSEA [None]
  - NUCHAL RIGIDITY [None]
  - RUPTURED CEREBRAL ANEURYSM [None]
  - SIMPLE PARTIAL SEIZURES [None]
  - SUBARACHNOID HAEMORRHAGE [None]
  - SUBDURAL HAEMATOMA [None]
  - SYNCOPE [None]
  - TREMOR [None]
  - VOMITING [None]
